FAERS Safety Report 7385290-8 (Version None)
Quarter: 2011Q1

REPORT INFORMATION
  Report Type: 
  Country: None (occurrence: None)
  Receive Date: 20110330
  Receipt Date: 20100514
  Transmission Date: 20110831
  Serious: No
  Sender: FDA-Public Use
  Company Number: US-MYLANLABS-2010S1006624

PATIENT
  Age: 56 Year
  Sex: Male
  Weight: 88.45 kg

DRUGS (11)
  1. EMSAM [Suspect]
     Route: 062
     Dates: start: 20100208, end: 20100322
  2. EMSAM [Suspect]
     Route: 062
     Dates: start: 20100208, end: 20100322
  3. EMSAM [Suspect]
     Indication: MAJOR DEPRESSION
     Dosage: Q24H
     Route: 062
     Dates: start: 20091207, end: 20100208
  4. METFORMIN [Concomitant]
  5. EMSAM [Suspect]
     Indication: MAJOR DEPRESSION
     Route: 062
     Dates: start: 20070322, end: 20100201
  6. EMSAM [Suspect]
     Indication: BIPOLAR DISORDER
     Route: 062
     Dates: start: 20070322, end: 20100201
  7. EMSAM [Suspect]
     Indication: BIPOLAR DISORDER
     Dosage: Q24H
     Route: 062
     Dates: start: 20091207, end: 20100208
  8. NIASPAN [Concomitant]
  9. VYTORIN [Concomitant]
  10. WELLBUTRIN SR [Concomitant]
     Dates: start: 20070322, end: 20100201
  11. TAZTIA XT [Concomitant]

REACTIONS (3)
  - BLOOD PRESSURE INCREASED [None]
  - PALPITATIONS [None]
  - HEADACHE [None]
